FAERS Safety Report 7099120-5 (Version None)
Quarter: 2010Q4

REPORT INFORMATION
  Report Type: 
  Country: None (occurrence: None)
  Receive Date: 20101112
  Receipt Date: 20101104
  Transmission Date: 20110411
  Serious: Yes (Other)
  Sender: FDA-Public Use
  Company Number: B0676196A

PATIENT
  Age: 58 Year
  Sex: Female

DRUGS (2)
  1. PAROXETINE HCL [Suspect]
     Indication: INSOMNIA
     Dosage: 10MG PER DAY
     Route: 048
     Dates: start: 20100910, end: 20100912
  2. CHINESE MEDICINE [Concomitant]

REACTIONS (4)
  - ABDOMINAL DISTENSION [None]
  - CONVULSION [None]
  - RASH PRURITIC [None]
  - SWELLING FACE [None]
